FAERS Safety Report 13536328 (Version 2)
Quarter: 2017Q3

REPORT INFORMATION
  Report Type: Spontaneous
  Country: US (occurrence: US)
  Receive Date: 20170511
  Receipt Date: 20170713
  Transmission Date: 20171127
  Serious: No
  Sender: FDA-Public Use
  Company Number: US-PFIZER INC-2017204107

PATIENT
  Age: 58 Year
  Sex: Female

DRUGS (1)
  1. XELJANZ [Suspect]
     Active Substance: TOFACITINIB CITRATE
     Dosage: 5 MG, UNK

REACTIONS (5)
  - Swelling [Unknown]
  - Vulvovaginal dryness [Unknown]
  - Mucosal dryness [Unknown]
  - Crying [Unknown]
  - Dry eye [Unknown]

NARRATIVE: CASE EVENT DATE: 20170508
